FAERS Safety Report 4316429-6 (Version None)
Quarter: 2004Q1

REPORT INFORMATION
  Report Type: 
  Country: None (occurrence: None)
  Receive Date: 20040311
  Receipt Date: 20040227
  Transmission Date: 20041129
  Serious: Yes (Other)
  Sender: FDA-Public Use
  Company Number: 2003111100

PATIENT
  Age: 80 Year
  Sex: Female

DRUGS (10)
  1. NORVASC [Suspect]
     Indication: HYPERTENSION
     Dosage: 5 MG DAILY ORAL
     Route: 048
     Dates: start: 19990301, end: 20030910
  2. DENOPAMINE [Concomitant]
  3. PIRETANIDE [Concomitant]
  4. METILDIGOXIN [Concomitant]
  5. TRANDOLAPRIL [Concomitant]
  6. SENNA [Concomitant]
  7. ALFACALCIDOL [Concomitant]
  8. PRAVASTATIN SODIUM [Concomitant]
  9. ALLOPURINOL [Concomitant]
  10. ORCIPRENALINE SULFATE [Concomitant]

REACTIONS (4)
  - ATRIOVENTRICULAR BLOCK [None]
  - ATRIOVENTRICULAR BLOCK COMPLETE [None]
  - BRADYCARDIA [None]
  - ELECTROCARDIOGRAM ABNORMAL [None]
